FAERS Safety Report 21684224 (Version 1)
Quarter: 2022Q4

REPORT INFORMATION
  Report Type: Spontaneous
  Country: US (occurrence: None)
  Receive Date: 20221204
  Receipt Date: 20221204
  Transmission Date: 20230112
  Serious: Yes (Hospitalization)
  Sender: FDA-Public Use
  Company Number: None

PATIENT
  Age: 77 Year
  Sex: Male

DRUGS (8)
  1. MYCOPHENOLIC ACID [Suspect]
     Active Substance: MYCOPHENOLIC ACID
  2. TACROLIMUS [Suspect]
     Active Substance: TACROLIMUS
  3. ELIQUIS [Concomitant]
     Active Substance: APIXABAN
  4. FLONASE ALGY SPR [Concomitant]
  5. LEVOTHYROXIN TAB [Concomitant]
  6. METOPROL SUC TAB [Concomitant]
  7. PREDNISONE [Concomitant]
     Active Substance: PREDNISONE
  8. TACROLIMUS CAP [Concomitant]

REACTIONS (2)
  - COVID-19 [None]
  - Therapy interrupted [None]

NARRATIVE: CASE EVENT DATE: 20221109
